FAERS Safety Report 22289057 (Version 1)
Quarter: 2023Q2

REPORT INFORMATION
  Report Type: Other
  Country: None (occurrence: JP)
  Receive Date: 20230505
  Receipt Date: 20230505
  Transmission Date: 20230721
  Serious: Yes (Death)
  Sender: FDA-Public Use
  Company Number: JP-B.Braun Medical Inc.-2141158

PATIENT
  Age: 76 Year
  Sex: Male
  Weight: 72 kg

DRUGS (3)
  1. CEFTRIAXONE SODIUM [Suspect]
     Active Substance: CEFTRIAXONE SODIUM
     Indication: Pyrexia
     Route: 042
  2. PREDNISOLONE [Concomitant]
     Active Substance: PREDNISOLONE
  3. Activated factor VII (rFVIIa) [Concomitant]

REACTIONS (5)
  - Pseudocholelithiasis [Fatal]
  - Haemorrhagic cholecystitis [Fatal]
  - Gallbladder rupture [Fatal]
  - Abdominal distension [Fatal]
  - Shock haemorrhagic [Fatal]
